FAERS Safety Report 6913924-8 (Version None)
Quarter: 2010Q3

REPORT INFORMATION
  Report Type: 
  Country: None (occurrence: None)
  Receive Date: 20100809
  Receipt Date: 20100803
  Transmission Date: 20110219
  Serious: Yes (Hospitalization)
  Sender: FDA-Public Use
  Company Number: IE-SANOFI-AVENTIS-2010SA043225

PATIENT
  Age: 73 Year
  Sex: Male

DRUGS (3)
  1. MULTAQ [Suspect]
     Route: 048
  2. ESOMEPRAZOLE MAGNESIUM [Concomitant]
     Indication: GASTRITIS
     Route: 048
  3. NEBIVOLOL HCL [Concomitant]
     Indication: PALPITATIONS
     Route: 048

REACTIONS (4)
  - ATRIAL FLUTTER [None]
  - CHEST PAIN [None]
  - DYSPNOEA [None]
  - PALPITATIONS [None]
